FAERS Safety Report 6240183-4 (Version None)
Quarter: 2009Q2

REPORT INFORMATION
  Report Type: 
  Country: None (occurrence: None)
  Receive Date: 20090618
  Receipt Date: 20090618
  Transmission Date: 20091009
  Serious: Yes (Life-Threatening, Other)
  Sender: FDA-Public Use
  Company Number: None

PATIENT
  Age: 73 Year
  Sex: Female
  Weight: 58.514 kg

DRUGS (1)
  1. WELLBUTRIN [Suspect]

REACTIONS (2)
  - GAIT DISTURBANCE [None]
  - STEVENS-JOHNSON SYNDROME [None]
